FAERS Safety Report 8644666 (Version 4)
Quarter: 2013Q4

REPORT INFORMATION
  Report Type: Report from Study
  Country: BR (occurrence: BR)
  Receive Date: 20120702
  Receipt Date: 20131217
  Transmission Date: 20140711
  Serious: Yes (Hospitalization, Other)
  Sender: FDA-Public Use
  Company Number: BR-ROCHE-1082550

PATIENT
  Age: 49 Year
  Sex: Female
  Weight: 60 kg

DRUGS (6)
  1. MABTHERA [Suspect]
     Indication: RHEUMATOID ARTHRITIS
     Route: 065
     Dates: start: 20111108, end: 20111125
  2. MABTHERA [Suspect]
     Indication: RHEUMATOID ARTHRITIS
  3. DEFLANIL [Concomitant]
     Route: 065
  4. DICLOFENAC [Concomitant]
     Route: 065
  5. METHOTREXATE [Concomitant]
     Route: 065
  6. MIOFLEX A [Concomitant]

REACTIONS (2)
  - Intervertebral disc protrusion [Recovering/Resolving]
  - Drug hypersensitivity [Recovered/Resolved]
